FAERS Safety Report 9969350 (Version 1)
Quarter: 2014Q1

REPORT INFORMATION
  Report Type: Spontaneous
  Country: US (occurrence: US)
  Receive Date: 20140306
  Receipt Date: 20140306
  Transmission Date: 20141002
  Serious: No
  Sender: FDA-Public Use
  Company Number: US-BIOGENIDEC-2014BI018607

PATIENT
  Age: 75 Year
  Sex: Female

DRUGS (13)
  1. TECFIDERA [Suspect]
     Indication: MULTIPLE SCLEROSIS
     Route: 048
  2. BACLOFEN [Concomitant]
  3. CALTRATE 600+D [Concomitant]
  4. CENTRUM SAVER ADULT 50+ [Concomitant]
  5. COQ 10 [Concomitant]
  6. EVISTA [Concomitant]
  7. FISH OIL [Concomitant]
  8. HYZAAR [Concomitant]
  9. NORVASC [Concomitant]
  10. PLAVIX [Concomitant]
  11. VITAMIN D-3 [Concomitant]
  12. ZITHROMAX Z-PAK [Concomitant]
  13. PAXIL [Concomitant]

REACTIONS (2)
  - Rhinorrhoea [Unknown]
  - Oropharyngeal pain [Unknown]
